FAERS Safety Report 5721812-8 (Version None)
Quarter: 2008Q2

REPORT INFORMATION
  Report Type: 
  Country: None (occurrence: None)
  Receive Date: 20080429
  Receipt Date: 20070507
  Transmission Date: 20081010
  Serious: No
  Sender: FDA-Public Use
  Company Number: US-ASTRAZENECA-2007UW10873

PATIENT
  Age: 73 Year
  Sex: Female
  Weight: 66.2 kg

DRUGS (6)
  1. NEXIUM [Suspect]
     Indication: GASTROOESOPHAGEAL REFLUX DISEASE
     Route: 048
     Dates: end: 20070417
  2. THYROID TAB [Concomitant]
  3. TOPROL-XL [Concomitant]
  4. VITAMINS [Concomitant]
  5. ASPIRIN [Concomitant]
  6. CALCIUM [Concomitant]

REACTIONS (3)
  - BONE DENSITY DECREASED [None]
  - BONE PAIN [None]
  - SPINAL OSTEOARTHRITIS [None]
